FAERS Safety Report 5345731-4 (Version None)
Quarter: 2007Q2

REPORT INFORMATION
  Report Type: 
  Country: None (occurrence: None)
  Receive Date: 20070601
  Receipt Date: 20070529
  Transmission Date: 20071010
  Serious: Yes (Death)
  Sender: FDA-Public Use
  Company Number: TCI2007A02483

PATIENT
  Age: 79 Year
  Sex: Male

DRUGS (5)
  1. LEUPROLIDE ACETATE [Suspect]
     Indication: PROSTATE CANCER
     Dosage: 3.75 MG (3.75 MG, 1 IN 28 D); SUBCUTANEOUS
     Route: 058
     Dates: start: 20070329, end: 20070518
  2. LOXONIN (LOXOPROFEN SODIUM) (TABLETS) [Concomitant]
  3. MUCOSTA (REBAMIPIDE) (TABLETS) [Concomitant]
  4. ALLOID G (SODIUM ALGINATE) (SOLUTION) [Concomitant]
  5. GASMOTIN (MOSAPRIDE CITRATE) (TABLETS) [Concomitant]

REACTIONS (6)
  - CARDIAC ARREST [None]
  - CONDITION AGGRAVATED [None]
  - DRUG INEFFECTIVE [None]
  - HAEMOLYSIS [None]
  - HYPERKALAEMIA [None]
  - MYOCARDIAL INFARCTION [None]
